FAERS Safety Report 9420144 (Version 2)
Quarter: 2013Q3

REPORT INFORMATION
  Report Type: Spontaneous
  Country: CA (occurrence: CA)
  Receive Date: 20130725
  Receipt Date: 20130806
  Transmission Date: 20140515
  Serious: Yes (Other)
  Sender: FDA-Public Use
  Company Number: CA-JNJFOC-20130710702

PATIENT
  Sex: 0

DRUGS (5)
  1. DOXORUBICIN [Suspect]
     Indication: PLASMA CELL MYELOMA
     Dosage: ADMINISTERED EVERY 4-6 WEEKS
     Route: 042
  2. DEXAMETHASONE [Suspect]
     Indication: PLASMA CELL MYELOMA
     Dosage: FOR 4 DAYS
     Route: 048
  3. CISPLATIN [Suspect]
     Indication: PLASMA CELL MYELOMA
     Dosage: 4 DAY CONTINUOUS INFUSION
     Route: 042
  4. CYCLOPHOSPHAMIDE [Suspect]
     Indication: PLASMA CELL MYELOMA
     Route: 042
  5. ETOPOSIDE [Suspect]
     Indication: PLASMA CELL MYELOMA
     Route: 042

REACTIONS (1)
  - Bacterial sepsis [Unknown]
